FAERS Safety Report 7739917-9 (Version None)
Quarter: 2011Q3

REPORT INFORMATION
  Report Type: 
  Country: None (occurrence: None)
  Receive Date: 20110909
  Receipt Date: 20110906
  Transmission Date: 20111222
  Serious: Yes (Death, Other)
  Sender: FDA-Public Use
  Company Number: PHHY2011CA67518

PATIENT
  Sex: Female

DRUGS (21)
  1. CLOZAPINE [Suspect]
     Indication: AGITATION
     Dates: start: 20090310
  2. SINEMET [Concomitant]
     Dosage: 100/25 1/4 AS QID + 1/200 TID +3/400
  3. CALCIUM CARBONATE [Concomitant]
     Dosage: 500 MG, BID
  4. PANTOPRAZOLE SODIUM [Concomitant]
     Dosage: 40 MG, DIE
  5. MOTILIUM [Concomitant]
     Dosage: 10 MG, TID
  6. SENOKOT [Concomitant]
     Dosage: 24 MG, HS
  7. EXELON [Concomitant]
     Dosage: 9.5 MG, DAILY
  8. ATIVAN [Concomitant]
     Dosage: 0.5 MG, TID
  9. TRUSOPT [Concomitant]
     Dosage: 2% OR 1 DROP
  10. TRAMADOL HYDROCHLORIDE [Concomitant]
     Dosage: 0.5 %
  11. COMTAN [Concomitant]
     Dosage: 200 MG, BID
  12. REMERON [Concomitant]
     Dosage: 30 MG, DAILY
  13. CLOZAPINE [Suspect]
     Indication: PARKINSON'S DISEASE
     Dosage: 43.75 MG, DIF
     Route: 048
     Dates: start: 20100201, end: 20110408
  14. CLOZAPINE [Suspect]
     Indication: DEMENTIA
  15. TRILEPTAL [Concomitant]
     Dosage: 150 MG, DIE
  16. EFFEXOR [Concomitant]
     Dosage: 75 MG, DIE
  17. SORBITOL [Concomitant]
     Dosage: 70 %, 30 ML DIE
  18. TYLENOL-500 [Concomitant]
     Dosage: 650 MG BID PRN+QID REGULAR
  19. VITAMIN D [Concomitant]
  20. DILAUDID [Concomitant]
     Dosage: 0.5 MG, BID
  21. TIMOLOL MALEATE [Concomitant]
     Dosage: 0.5 %, BID

REACTIONS (11)
  - PYREXIA [None]
  - CREPITATIONS [None]
  - CYANOSIS [None]
  - ATRIAL FIBRILLATION [None]
  - DEATH [None]
  - PNEUMONIA ASPIRATION [None]
  - VENTRICULAR FIBRILLATION [None]
  - ELECTROCARDIOGRAM ST-T CHANGE [None]
  - PAIN [None]
  - LOSS OF CONSCIOUSNESS [None]
  - HYPOTENSION [None]
